FAERS Safety Report 4415464-7 (Version None)
Quarter: 2004Q2

REPORT INFORMATION
  Report Type: 
  Country: None (occurrence: None)
  Receive Date: 20040621
  Receipt Date: 20031215
  Transmission Date: 20050107
  Serious: Yes (Hospitalization)
  Sender: FDA-Public Use
  Company Number: USA-2003-0012097

PATIENT
  Age: 50 Year
  Sex: Male

DRUGS (7)
  1. OXYCONTIN [Suspect]
     Indication: PAIN
     Dosage: 80 MG Q8H ORAL
     Route: 048
  2. SIMVASTATIN [Concomitant]
  3. PLAVIX [Concomitant]
  4. METOPROLOL [Concomitant]
  5. ISOSORBIDE [Concomitant]
  6. QUESTRAN [Concomitant]
  7. FLURAZEPAM [Concomitant]

REACTIONS (4)
  - CHEST PAIN [None]
  - DRUG WITHDRAWAL SYNDROME [None]
  - IRRITABILITY [None]
  - NAUSEA [None]
